FAERS Safety Report 7349114-7 (Version None)
Quarter: 2011Q1

REPORT INFORMATION
  Report Type: 
  Country: None (occurrence: None)
  Receive Date: 20110314
  Receipt Date: 20110125
  Transmission Date: 20110831
  Serious: Yes (Death)
  Sender: FDA-Public Use
  Company Number: US-TYCO HEALTHCARE/MALLINCKRODT-T201100465

PATIENT
  Age: 61 Year
  Sex: Male

DRUGS (8)
  1. DOXAZOSIN [Suspect]
     Route: 048
  2. MIRTAZAPINE [Suspect]
     Route: 048
  3. RISPERDONE [Suspect]
     Route: 048
  4. LISINOPRIL [Suspect]
     Route: 048
  5. BENZONATATE [Suspect]
     Route: 048
  6. TEMAZEPAM [Suspect]
     Route: 048
  7. BENZTROPINE MESYLATE [Suspect]
     Route: 048
  8. LORAZEPAM [Suspect]
     Route: 048

REACTIONS (1)
  - COMPLETED SUICIDE [None]
